FAERS Safety Report 19733943 (Version 2)
Quarter: 2022Q2

REPORT INFORMATION
  Report Type: Spontaneous
  Country: BE (occurrence: BE)
  Receive Date: 20210824
  Receipt Date: 20220601
  Transmission Date: 20220721
  Serious: Yes (Hospitalization, Other)
  Sender: FDA-Public Use
  Company Number: BE-ACCORD-236249

PATIENT
  Age: 63 Year
  Sex: Male
  Weight: 79 kg

DRUGS (42)
  1. CARBOPLATIN [Suspect]
     Active Substance: CARBOPLATIN
     Indication: Diffuse large B-cell lymphoma stage III
     Dosage: 1Q3W
     Route: 042
     Dates: start: 20210804
  2. CYTARABINE [Suspect]
     Active Substance: CYTARABINE
     Indication: Diffuse large B-cell lymphoma stage III
     Dosage: 1Q3W (CYCLE 1-3)
     Route: 042
     Dates: start: 20210804, end: 20210805
  3. DEXAMETHASONE [Suspect]
     Active Substance: DEXAMETHASONE
     Indication: Diffuse large B-cell lymphoma stage III
     Dosage: QD
     Route: 042
     Dates: start: 20210804, end: 20210807
  4. RITUXIMAB [Suspect]
     Active Substance: RITUXIMAB
     Indication: Diffuse large B-cell lymphoma stage III
     Dosage: 1Q3W (CYCLE 1-3)
     Route: 042
     Dates: start: 20210804
  5. EPCORITAMAB [Suspect]
     Active Substance: EPCORITAMAB
     Indication: Diffuse large B-cell lymphoma stage III
     Dosage: PRIMING DOSE, SINGLE
     Route: 058
     Dates: start: 20210804, end: 20210804
  6. CLEMASTINE FUMARATE [Concomitant]
     Active Substance: CLEMASTINE FUMARATE
     Indication: Premedication
     Route: 042
     Dates: start: 20210804, end: 20210804
  7. ACETAMINOPHEN [Concomitant]
     Active Substance: ACETAMINOPHEN
     Indication: Premedication
     Route: 048
     Dates: start: 20210804, end: 20210804
  8. DEXAMETHASONE [Concomitant]
     Active Substance: DEXAMETHASONE
     Indication: Prophylaxis
     Route: 048
     Dates: start: 20210805, end: 20210805
  9. ACYCLOVIR [Concomitant]
     Active Substance: ACYCLOVIR
     Dates: start: 20210621
  10. FEBUXOSTAT [Concomitant]
     Active Substance: FEBUXOSTAT
     Dates: start: 20201004
  11. AUGMENTIN [Concomitant]
     Active Substance: AMOXICILLIN\CLAVULANATE POTASSIUM
     Dates: start: 20210712, end: 20210722
  12. BACTRIM [Concomitant]
     Active Substance: SULFAMETHOXAZOLE\TRIMETHOPRIM
     Dates: start: 20210718
  13. BUMETANIDE [Concomitant]
     Active Substance: BUMETANIDE
     Dates: start: 20210806, end: 20210808
  14. ENOXAPARIN SODIUM [Concomitant]
     Active Substance: ENOXAPARIN SODIUM
     Dates: start: 20210719, end: 20210729
  15. COLCHICINE [Concomitant]
     Active Substance: COLCHICINE
     Dates: start: 20210712, end: 20210804
  16. CHOLECALCIFEROL [Concomitant]
     Active Substance: CHOLECALCIFEROL
     Dates: start: 20210718
  17. DAFALGAN [Concomitant]
     Active Substance: ACETAMINOPHEN
     Dates: start: 20210718, end: 20210804
  18. DEXAMETHASONE SODIUM PHOSPHATE [Concomitant]
     Active Substance: DEXAMETHASONE SODIUM PHOSPHATE
     Dates: start: 20210804
  19. DEXERYL [Concomitant]
     Dates: start: 20210810, end: 20210813
  20. ESOMEPRAZOLE [Concomitant]
     Active Substance: ESOMEPRAZOLE
     Dates: start: 20210718
  21. FASTURTEC [Concomitant]
     Active Substance: RASBURICASE
     Dates: start: 20210804, end: 20210812
  22. FLUCONAZOLE [Concomitant]
     Active Substance: FLUCONAZOLE
     Dates: start: 20210804
  23. HUMULINE [Concomitant]
     Dates: start: 20210805, end: 20210809
  24. IBUPROFEN [Concomitant]
     Active Substance: IBUPROFEN
     Dates: start: 20210712, end: 20210714
  25. LASIX [Concomitant]
     Active Substance: FUROSEMIDE
     Dates: start: 20210805, end: 20210811
  26. ALIZAPRIDE HYDROCHLORIDE [Concomitant]
     Active Substance: ALIZAPRIDE HYDROCHLORIDE
     Dates: start: 20210804, end: 20210804
  27. LIPEGFILGRASTIM [Concomitant]
     Active Substance: LIPEGFILGRASTIM
     Dates: start: 20210805, end: 20210805
  28. LATANOPROST [Concomitant]
     Active Substance: LATANOPROST
     Dates: start: 20210719, end: 20210916
  29. MOVICOL [Concomitant]
     Active Substance: POLYETHYLENE GLYCOL 3350\POTASSIUM CHLORIDE\SODIUM BICARBONATE\SODIUM CHLORIDE
     Dates: start: 20210810
  30. MOXONIDINE [Concomitant]
     Active Substance: MOXONIDINE
     Dates: start: 20210719, end: 20210827
  31. OMEPRAZOLE [Concomitant]
     Active Substance: OMEPRAZOLE
     Dates: start: 20210719
  32. ONDANSETRON [Concomitant]
     Active Substance: ONDANSETRON
     Dates: start: 20210804
  33. AMITRIPTYLINE HYDROCHLORIDE [Concomitant]
     Active Substance: AMITRIPTYLINE HYDROCHLORIDE
     Dates: start: 20210729, end: 20210927
  34. LORAZEPAM [Concomitant]
     Active Substance: LORAZEPAM
     Dates: start: 20210804, end: 20210804
  35. FILGRASTIM [Concomitant]
     Active Substance: FILGRASTIM
     Dates: start: 20210726, end: 20210804
  36. HYALURONATE SODIUM\TREHALOSE [Concomitant]
     Active Substance: HYALURONATE SODIUM\TREHALOSE
     Dates: start: 20210804
  37. TRAMADOL HYDROCHLORIDE [Concomitant]
     Active Substance: TRAMADOL HYDROCHLORIDE
     Indication: Cholecystitis
     Dates: start: 20210718, end: 20211029
  38. VITAMIN A PALMITATE [Concomitant]
     Active Substance: VITAMIN A PALMITATE
     Dates: start: 20210805
  39. XALATAN [Concomitant]
     Active Substance: LATANOPROST
     Dates: start: 20210718
  40. XANAX [Concomitant]
     Active Substance: ALPRAZOLAM
     Dates: start: 20210728, end: 20210728
  41. ZOFRAN [Concomitant]
     Active Substance: ONDANSETRON HYDROCHLORIDE
     Dates: start: 20210808, end: 20210810
  42. FASTURTEC [Concomitant]
     Active Substance: RASBURICASE
     Dates: start: 20210807, end: 20210812

REACTIONS (2)
  - Acute kidney injury [Recovered/Resolved]
  - Off label use [Unknown]

NARRATIVE: CASE EVENT DATE: 20210807
